FAERS Safety Report 4444693-1 (Version None)
Quarter: 2004Q3

REPORT INFORMATION
  Report Type: 
  Country: None (occurrence: None)
  Receive Date: 20040909
  Receipt Date: 20030324
  Transmission Date: 20050211
  Serious: Yes (Hospitalization)
  Sender: FDA-Public Use
  Company Number: US-BRISTOL-MYERS SQUIBB COMPANY-12207171

PATIENT
  Age: 69 Year
  Sex: Male
  Weight: 62 kg

DRUGS (6)
  1. CISPLATIN [Suspect]
     Indication: CARCINOMA
     Route: 042
     Dates: start: 19950817, end: 19950817
  2. CETUXIMAB [Suspect]
     Indication: CARCINOMA
     Route: 042
     Dates: start: 19950817, end: 19950817
  3. DECADRON [Concomitant]
  4. KYTRIL [Concomitant]
  5. ENSURE [Concomitant]
  6. REGLAN [Concomitant]

REACTIONS (5)
  - CANDIDIASIS [None]
  - DYSPNOEA [None]
  - EPIGLOTTIC OEDEMA [None]
  - EPIGLOTTITIS [None]
  - STRIDOR [None]
